FAERS Safety Report 17439093 (Version 1)
Quarter: 2020Q1

REPORT INFORMATION
  Report Type: Spontaneous
  Country: US (occurrence: US)
  Receive Date: 20200220
  Receipt Date: 20200220
  Transmission Date: 20200409
  Serious: Yes (Life-Threatening, Hospitalization, Other)
  Sender: FDA-Public Use
  Company Number: US-LUPIN PHARMACEUTICALS INC.-2020-00866

PATIENT
  Age: 21 Year
  Sex: Male

DRUGS (3)
  1. LORAZEPAM. [Suspect]
     Active Substance: LORAZEPAM
     Indication: CONFUSIONAL STATE
     Dosage: 4 MILLIGRAM, UNK
     Route: 042
  2. VILAZODONE HYDROCHLORIDE [Concomitant]
     Active Substance: VILAZODONE HYDROCHLORIDE
     Indication: DEPRESSION
     Dosage: 400 MILLIGRAM (INTENTIONAL INGESTION OF 400 MG (6.8 MG/KG)
     Route: 048
  3. LORAZEPAM. [Suspect]
     Active Substance: LORAZEPAM
     Dosage: 9 MILLIGRAM, UNK
     Route: 042

REACTIONS (3)
  - Drug resistance [Unknown]
  - Serotonin syndrome [Recovering/Resolving]
  - Condition aggravated [Recovering/Resolving]
